FAERS Safety Report 4484925-7 (Version None)
Quarter: 2004Q3

REPORT INFORMATION
  Report Type: 
  Country: None (occurrence: None)
  Receive Date: 20040921
  Receipt Date: 20030812
  Transmission Date: 20050211
  Serious: Yes (Other)
  Sender: FDA-Public Use
  Company Number: 163-20785-03080479

PATIENT
  Age: 60 Year
  Sex: Male

DRUGS (5)
  1. THALOMID [Suspect]
     Indication: MULTIPLE MYELOMA
     Dosage: 100 MG, DAILY, ORAL
     Route: 048
     Dates: start: 20021101
  2. COUMDADINE (WARFARIN) [Concomitant]
  3. HYDROCHLOROTHIAZIDE [Concomitant]
  4. DECADRON [Concomitant]
  5. VITAMIN B6 (PYRIDOXINE HYDRCHLORIDE) [Concomitant]

REACTIONS (1)
  - CONVULSION [None]
